FAERS Safety Report 24293993 (Version 1)
Quarter: 2024Q3

REPORT INFORMATION
  Report Type: Spontaneous
  Country: US (occurrence: None)
  Receive Date: 20240906
  Receipt Date: 20240906
  Transmission Date: 20241016
  Serious: No
  Sender: DOMPE FARMACEUTICI
  Company Number: US-FARMAPROD-202403-1070

PATIENT
  Sex: Female

DRUGS (11)
  1. OXERVATE [Suspect]
     Active Substance: CENEGERMIN-BKBJ
     Indication: Neurotrophic keratopathy
     Route: 047
     Dates: start: 20240318
  2. OXERVATE [Suspect]
     Active Substance: CENEGERMIN-BKBJ
  3. PANTOPRAZOLE SODIUM [Concomitant]
     Active Substance: PANTOPRAZOLE SODIUM
  4. FAMOTIDINE [Concomitant]
     Active Substance: FAMOTIDINE
  5. NP THYROID [Concomitant]
     Active Substance: LEVOTHYROXINE\LIOTHYRONINE
  6. NP THYROID [Concomitant]
     Active Substance: LEVOTHYROXINE\LIOTHYRONINE
  7. NP THYROID [Concomitant]
     Active Substance: LEVOTHYROXINE\LIOTHYRONINE
  8. REFRESH RELIEVA [Concomitant]
     Active Substance: CARBOXYMETHYLCELLULOSE SODIUM\GLYCERIN
     Dosage: 0.5%-0.9%
  9. OMEGA 3 [Concomitant]
     Active Substance: CAPSAICIN
     Dosage: 684-1200MG
  10. COENZYME Q-10 [Concomitant]
     Dosage: 100MG-5
  11. VITAMIN D3 [Concomitant]
     Active Substance: CHOLECALCIFEROL

REACTIONS (3)
  - Product dose omission issue [Unknown]
  - Device use issue [Not Recovered/Not Resolved]
  - Hypoacusis [Unknown]
